FAERS Safety Report 8399837-6 (Version None)
Quarter: 2012Q2

REPORT INFORMATION
  Report Type: 
  Country: None (occurrence: None)
  Receive Date: 20120531
  Receipt Date: 20120525
  Transmission Date: 20120825
  Serious: Yes (Congenital Anomaly, Other)
  Sender: FDA-Public Use
  Company Number: US-PFIZER INC-2012128836

PATIENT
  Sex: Male
  Weight: 2.7 kg

DRUGS (3)
  1. ZOLOFT [Suspect]
     Indication: DEPRESSION
     Dosage: 50 MG, HALF TABLET ONCE DAILY
     Route: 064
     Dates: start: 20021017
  2. ZOLOFT [Suspect]
     Indication: ANXIETY
  3. MULTI-VITAMINS [Concomitant]
     Dosage: UNK
     Route: 064
     Dates: start: 20021231

REACTIONS (2)
  - MATERNAL EXPOSURE DURING PREGNANCY [None]
  - LIMB MALFORMATION [None]
